FAERS Safety Report 24997244 (Version 1)
Quarter: 2025Q1

REPORT INFORMATION
  Report Type: Spontaneous
  Country: KR (occurrence: KR)
  Receive Date: 20250221
  Receipt Date: 20250221
  Transmission Date: 20250408
  Serious: Yes (Death)
  Sender: MALLINCKRODT
  Company Number: KR-MALLINCKRODT-MNK202501002

PATIENT
  Age: 2 Day
  Weight: 1 kg

DRUGS (1)
  1. NITRIC OXIDE [Suspect]
     Active Substance: NITRIC OXIDE
     Indication: Newborn persistent pulmonary hypertension
     Route: 055
     Dates: start: 20250211, end: 20250213

REACTIONS (2)
  - Intraventricular haemorrhage neonatal [Fatal]
  - Product use issue [Unknown]

NARRATIVE: CASE EVENT DATE: 20250211
